FAERS Safety Report 6773898-X (Version None)
Quarter: 2010Q2

REPORT INFORMATION
  Report Type: 
  Country: None (occurrence: None)
  Receive Date: 20100617
  Receipt Date: 20100607
  Transmission Date: 20101027
  Serious: No
  Sender: FDA-Public Use
  Company Number: 2008BI031447

PATIENT
  Age: 76 Year
  Sex: Female

DRUGS (1)
  1. TYSABRI [Suspect]
     Indication: MULTIPLE SCLEROSIS
     Route: 042
     Dates: start: 20081024, end: 20081120

REACTIONS (13)
  - ABASIA [None]
  - BALANCE DISORDER [None]
  - DIZZINESS [None]
  - EYE DISORDER [None]
  - FATIGUE [None]
  - FEELING ABNORMAL [None]
  - FLUID RETENTION [None]
  - HEARING IMPAIRED [None]
  - HEART RATE ABNORMAL [None]
  - MUSCULAR WEAKNESS [None]
  - NERVE INJURY [None]
  - OEDEMA PERIPHERAL [None]
  - SUPERFICIAL VEIN PROMINENCE [None]
